FAERS Safety Report 5166102-X (Version None)
Quarter: 2006Q4

REPORT INFORMATION
  Report Type: 
  Country: None (occurrence: None)
  Receive Date: 20061129
  Receipt Date: 20061114
  Transmission Date: 20070319
  Serious: Yes (Other)
  Sender: FDA-Public Use
  Company Number: SPV1-2006-01675

PATIENT

DRUGS (1)
  1. DAYTRANA [Suspect]

REACTIONS (1)
  - URTICARIA GENERALISED [None]
